FAERS Safety Report 7417854-7 (Version None)
Quarter: 2011Q2

REPORT INFORMATION
  Report Type: 
  Country: None (occurrence: None)
  Receive Date: 20110415
  Receipt Date: 20110411
  Transmission Date: 20111010
  Serious: Yes (Life-Threatening)
  Sender: FDA-Public Use
  Company Number: FR-PFIZER INC-2011078735

PATIENT
  Age: 62 Year
  Sex: Female

DRUGS (20)
  1. OXALIPLATIN [Suspect]
     Dosage: 155 MG, CYCLIC (IN TOTAL 3 COURSES)
     Dates: start: 20101208, end: 20110105
  2. FLUOROURACIL [Suspect]
     Dosage: 3.8 G/COURSE (6 COURSES)
     Dates: start: 20070330, end: 20070607
  3. FLUOROURACIL [Suspect]
     Dosage: 3.7 G/COURSE (THE FIRST 3 COURSES)
     Dates: start: 20100525, end: 20100804
  4. AVASTIN [Suspect]
     Dosage: 435 MG, CYCLIC
     Dates: start: 20070621, end: 20070621
  5. AVASTIN [Suspect]
     Dosage: 280 MG/COURSE (3 COURSES)
     Dates: start: 20101208, end: 20110105
  6. FLUOROURACIL [Suspect]
     Dosage: 3.6 G WITHIN 2 DAYS, CYCLIC (6 COURSES)
     Route: 042
     Dates: start: 20060620, end: 20060906
  7. FLUOROURACIL [Suspect]
     Dosage: 3.3 G/COURSE (24 COURSES)
     Dates: start: 20070802, end: 20080709
  8. AVASTIN [Suspect]
     Dosage: 290 MG/COURSE (6 COURSES)
     Route: 042
     Dates: start: 20070330, end: 20070607
  9. CAMPTOSAR [Suspect]
     Dosage: 9 COURSES (5 COURSES AT 140 MG, THEN 4 COURSES AT 120 MG)
     Route: 042
     Dates: start: 20100525, end: 20101124
  10. OXALIPLATIN [Suspect]
     Dosage: 6 COURSES
     Route: 042
     Dates: start: 20060620, end: 20060906
  11. OXALIPLATIN [Suspect]
     Dosage: 6 COURSES
     Dates: start: 20070330, end: 20070607
  12. OXALIPLATIN [Suspect]
     Dosage: 150 MG, CYCLIC
     Dates: start: 20081128, end: 20090212
  13. AVASTIN [Suspect]
     Dosage: 435 MG, CYCLIC
     Dates: start: 20070712, end: 20070712
  14. AVASTIN [Suspect]
     Dosage: 270 MG/COURSE (24 COURSES)
     Dates: start: 20070802, end: 20080709
  15. AVASTIN [Suspect]
     Dosage: 270 MG/COURSE (27 COURSES)
     Dates: start: 20090325, end: 20100504
  16. FLUOROURACIL [Suspect]
     Dosage: 3.7 G/COURSE (6 COURSES)
     Dates: start: 20081128, end: 20090212
  17. FLUOROURACIL [Suspect]
     Dosage: 3 G/COURSE (27 COURSES)
     Dates: start: 20090325, end: 20100504
  18. FLUOROURACIL [Suspect]
     Dosage: 3G/COURSE (THE NEXT 6 COURSES)
     Dates: start: 20100101, end: 20100101
  19. AVASTIN [Suspect]
     Dosage: 295 MG/COURSE (6 COURSES)
     Dates: start: 20081128, end: 20090212
  20. FLUOROURACIL [Suspect]
     Dosage: 3.7 G/COURSE (3 COURSES)
     Dates: start: 20101208, end: 20110105

REACTIONS (1)
  - CONGESTIVE CARDIOMYOPATHY [None]
